FAERS Safety Report 6579106-7 (Version None)
Quarter: 2010Q1

REPORT INFORMATION
  Report Type: 
  Country: None (occurrence: None)
  Receive Date: 20100212
  Receipt Date: 20100201
  Transmission Date: 20100710
  Serious: Yes (Other)
  Sender: FDA-Public Use
  Company Number: CA-JNJFOC-20100201971

PATIENT
  Age: 78 Year
  Sex: Female

DRUGS (7)
  1. TYLENOL (CAPLET) [Suspect]
     Route: 048
  2. TYLENOL (CAPLET) [Suspect]
     Indication: DRUG USE FOR UNKNOWN INDICATION
     Route: 048
  3. ELTROXIN [Concomitant]
  4. CITALOPRAM [Concomitant]
  5. RALOXIFENE HCL [Concomitant]
  6. CRESTOR [Concomitant]
  7. DIOVAN [Concomitant]

REACTIONS (4)
  - ABDOMINAL DISCOMFORT [None]
  - COUGH [None]
  - LUNG DISORDER [None]
  - PRODUCT ODOUR ABNORMAL [None]
